FAERS Safety Report 20164435 (Version 2)
Quarter: 2022Q1

REPORT INFORMATION
  Report Type: Report from Study
  Country: US (occurrence: US)
  Receive Date: 20211209
  Receipt Date: 20220111
  Transmission Date: 20220423
  Serious: Yes (Life-Threatening, Hospitalization)
  Sender: FDA-Public Use
  Company Number: US-NOVARTISPH-NVSC2021US279785

PATIENT
  Age: 13 Year
  Sex: Female
  Weight: 80 kg

DRUGS (13)
  1. PIQRAY [Suspect]
     Active Substance: ALPELISIB
     Indication: PIK3CA related overgrowth spectrum
     Dosage: 100 MG
     Route: 048
     Dates: start: 20200915, end: 20211220
  2. RIZATRIPTAN [Concomitant]
     Active Substance: RIZATRIPTAN
     Indication: Migraine
     Dosage: 5 MG (NOT RECENT USE)
     Route: 048
  3. NORTRIPTYLINE [Concomitant]
     Active Substance: NORTRIPTYLINE
     Indication: Migraine
     Dosage: 40 MG
     Route: 048
     Dates: end: 20210104
  4. MELATONIN [Concomitant]
     Active Substance: MELATONIN
     Indication: Insomnia
     Dosage: 3 MG
     Route: 048
     Dates: end: 20210104
  5. ESOMEPRAZOLE [Concomitant]
     Active Substance: ESOMEPRAZOLE
     Indication: Reflux gastritis
     Dosage: 20 MG
     Route: 048
     Dates: end: 20210104
  6. CYPROHEPTADINE [Concomitant]
     Active Substance: CYPROHEPTADINE
     Indication: Abdominal pain
     Dosage: 2 MG
     Route: 048
     Dates: end: 20210104
  7. CYPROHEPTADINE [Concomitant]
     Active Substance: CYPROHEPTADINE
     Indication: Nausea
  8. ALBUTEROL [Concomitant]
     Active Substance: ALBUTEROL
     Indication: Wheezing
     Dosage: 90 MCG/ML (2 PUTT PRN) (NO RECENT USE)
     Route: 065
     Dates: end: 20210104
  9. FLOVENT [Concomitant]
     Active Substance: FLUTICASONE PROPIONATE
     Indication: Wheezing
     Dosage: 20 PUTT, PRN
     Route: 065
  10. EMLA [Concomitant]
     Active Substance: LIDOCAINE\PRILOCAINE
     Indication: Product used for unknown indication
     Dosage: 25 %
     Route: 061
  11. VITAMINS [Concomitant]
     Active Substance: VITAMINS
     Indication: Vegetarian
     Dosage: 1 DOSAGE FORM
     Route: 065
     Dates: start: 20200820, end: 20210104
  12. CLINDAMYCIN [Concomitant]
     Active Substance: CLINDAMYCIN
     Indication: Acne
     Dosage: 150 MG
     Route: 065
  13. IBUPROFEN [Concomitant]
     Active Substance: IBUPROFEN
     Indication: COVID-19
     Dosage: 400 MG Q/6 HRS, PRN DOSE GIVEN 1-2X/DAILY AS NEEDED
     Route: 065
     Dates: start: 20210414, end: 20210524

REACTIONS (6)
  - Suicidal ideation [Recovered/Resolved]
  - Suicide attempt [Recovered/Resolved]
  - Hallucination [Not Recovered/Not Resolved]
  - Aggression [Not Recovered/Not Resolved]
  - Sensory disturbance [Unknown]
  - Parosmia [Unknown]

NARRATIVE: CASE EVENT DATE: 20211118
